FAERS Safety Report 15481741 (Version 1)
Quarter: 2018Q4

REPORT INFORMATION
  Report Type: Spontaneous
  Country: GB (occurrence: GB)
  Receive Date: 20181010
  Receipt Date: 20181010
  Transmission Date: 20190205
  Serious: Yes (Hospitalization, Other)
  Sender: FDA-Public Use
  Company Number: GB-ALKEM LABORATORIES LIMITED-GB-ALKEM-2018-08048

PATIENT
  Age: 64 Year
  Sex: Male

DRUGS (2)
  1. DIAZEPAM. [Concomitant]
     Active Substance: DIAZEPAM
     Indication: PREMEDICATION
     Dosage: 5 MG, UNK
     Route: 048
  2. CEFUROXIME AXETIL. [Suspect]
     Active Substance: CEFUROXIME AXETIL
     Indication: PROPHYLAXIS
     Dosage: 500 MG, UNK
     Route: 042

REACTIONS (2)
  - Kounis syndrome [Recovered/Resolved]
  - Cardiogenic shock [Recovered/Resolved]
